FAERS Safety Report 6411702-X (Version None)
Quarter: 2009Q4

REPORT INFORMATION
  Report Type: 
  Country: None (occurrence: None)
  Receive Date: 20091023
  Receipt Date: 20091015
  Transmission Date: 20100525
  Serious: Yes (Other)
  Sender: FDA-Public Use
  Company Number: US-ROCHE-663074

PATIENT
  Age: 51 Year
  Sex: Female

DRUGS (3)
  1. TAMIFLU [Suspect]
     Indication: INFLUENZA
     Route: 048
  2. TAMIFLU [Suspect]
     Route: 048
  3. IMMUNE GLOBULIN INTRAVENOUS (HUMAN) [Suspect]
     Dosage: RECEIVED ONE DOSE.
     Route: 042

REACTIONS (2)
  - DRUG INEFFECTIVE [None]
  - RESPIRATORY DISORDER [None]
